FAERS Safety Report 17186246 (Version 2)
Quarter: 2019Q4

REPORT INFORMATION
  Report Type: Spontaneous
  Country: ID (occurrence: ID)
  Receive Date: 20191220
  Receipt Date: 20191224
  Transmission Date: 20200122
  Serious: Yes (Death, Other)
  Sender: FDA-Public Use
  Company Number: ID-ASTRAZENECA-2019SF81954

PATIENT
  Age: 58 Year
  Sex: Male

DRUGS (1)
  1. IRESSA [Suspect]
     Active Substance: GEFITINIB
     Indication: LUNG ADENOCARCINOMA
     Route: 048

REACTIONS (4)
  - Malignant neoplasm progression [Unknown]
  - Superior vena cava syndrome [Fatal]
  - Loss of consciousness [Unknown]
  - EGFR gene mutation [Unknown]
